FAERS Safety Report 10193798 (Version 1)
Quarter: 2014Q2

REPORT INFORMATION
  Report Type: Spontaneous
  Country: US (occurrence: US)
  Receive Date: 20140524
  Receipt Date: 20140524
  Transmission Date: 20141212
  Serious: No
  Sender: FDA-Public Use
  Company Number: US-SANOFI-AVENTIS-2013SA047614

PATIENT
  Sex: Female

DRUGS (2)
  1. LANTUS SOLOSTAR [Suspect]
     Route: 051
     Dates: start: 201207
  2. SOLOSTAR [Suspect]
     Dates: start: 201207

REACTIONS (4)
  - Injection site haemorrhage [Unknown]
  - Pernicious anaemia [Unknown]
  - Muscular weakness [Unknown]
  - Asthenia [Unknown]
